FAERS Safety Report 14071427 (Version 1)
Quarter: 2017Q4

REPORT INFORMATION
  Report Type: Spontaneous
  Country: US (occurrence: None)
  Receive Date: 20171010
  Receipt Date: 20171010
  Transmission Date: 20180321
  Serious: Yes (Death)
  Sender: FDA-Public Use
  Company Number: None

PATIENT
  Age: 83 Year
  Sex: Female
  Weight: 77.1 kg

DRUGS (7)
  1. THIAMINE HCL [Concomitant]
  2. XARELTO [Suspect]
     Active Substance: RIVAROXABAN
  3. ACETAMINOPHEN. [Concomitant]
     Active Substance: ACETAMINOPHEN
  4. METOPROLOL TARTRATE. [Concomitant]
     Active Substance: METOPROLOL TARTRATE
  5. MULTIPLE VITAMIN [Concomitant]
     Active Substance: VITAMINS
  6. IPRATROPIUM [Concomitant]
     Active Substance: IPRATROPIUM
  7. BUMETANIDE. [Concomitant]
     Active Substance: BUMETANIDE

REACTIONS (3)
  - Lethargy [None]
  - Epistaxis [None]
  - Cardio-respiratory arrest [None]

NARRATIVE: CASE EVENT DATE: 20171007
